FAERS Safety Report 21611485 (Version 1)
Quarter: 2022Q4

REPORT INFORMATION
  Report Type: Spontaneous
  Country: US (occurrence: US)
  Receive Date: 20221117
  Receipt Date: 20221117
  Transmission Date: 20230113
  Serious: Yes (Hospitalization, Other)
  Sender: FDA-Public Use
  Company Number: US-AMGEN-USASP2022193628

PATIENT
  Sex: Male

DRUGS (1)
  1. PROCRIT [Suspect]
     Active Substance: ERYTHROPOIETIN
     Indication: Haemoglobin decreased
     Dosage: 10,000 UNITS/ML
     Route: 065

REACTIONS (7)
  - Dialysis [Unknown]
  - Haemoglobin decreased [Unknown]
  - Liver disorder [Unknown]
  - Haemorrhage [Unknown]
  - Unevaluable event [Unknown]
  - Product storage error [Unknown]
  - Circumstance or information capable of leading to medication error [Unknown]

NARRATIVE: CASE EVENT DATE: 20220101
